FAERS Safety Report 7613043-1 (Version None)
Quarter: 2011Q3

REPORT INFORMATION
  Report Type: 
  Country: None (occurrence: None)
  Receive Date: 20110708
  Receipt Date: 20110622
  Transmission Date: 20111222
  Serious: Yes (Other)
  Sender: FDA-Public Use
  Company Number: THQ2011A03385

PATIENT
  Age: 66 Year
  Sex: Male

DRUGS (6)
  1. SIMVASTATIN [Concomitant]
  2. ACTOS [Suspect]
     Indication: TYPE 2 DIABETES MELLITUS
     Dosage: 15 MG (1 D)
     Dates: end: 20110617
  3. HYDROCHLOROTHIAZIDE [Concomitant]
  4. METFORMIN HYDROCHLORIDE [Concomitant]
  5. BENAZEPRIL HYDROCHLORIDE [Concomitant]
  6. ATENOLOL [Concomitant]

REACTIONS (2)
  - BLADDER CANCER [None]
  - RENAL NEOPLASM [None]
